FAERS Safety Report 15962560 (Version 4)
Quarter: 2019Q1

REPORT INFORMATION
  Report Type: Report from Study
  Country: DE (occurrence: DE)
  Receive Date: 20190214
  Receipt Date: 20190325
  Transmission Date: 20190417
  Serious: Yes (Death, Life-Threatening, Hospitalization, Other)
  Sender: FDA-Public Use
  Company Number: PHHY2019DE009109

PATIENT
  Age: 66 Year
  Sex: Female
  Weight: 40.7 kg

DRUGS (2)
  1. KISQALI [Suspect]
     Active Substance: RIBOCICLIB
     Indication: BREAST CANCER METASTATIC
     Dosage: 200 MG, QD (1/D)
     Route: 048
     Dates: start: 20180714, end: 20181026
  2. LETROZOLE. [Suspect]
     Active Substance: LETROZOLE
     Indication: BREAST CANCER METASTATIC
     Dosage: 2.5 MG, QD (21/7)
     Route: 048
     Dates: start: 20180714, end: 20181026

REACTIONS (13)
  - Faecaloma [Unknown]
  - Intestinal ischaemia [Unknown]
  - Alanine aminotransferase increased [Unknown]
  - Alopecia [Unknown]
  - Nasopharyngitis [Recovered/Resolved]
  - Septic shock [Fatal]
  - Candida infection [Unknown]
  - Nasopharyngitis [Recovered/Resolved]
  - Nausea [Unknown]
  - Chronic obstructive pulmonary disease [Unknown]
  - Fatigue [Unknown]
  - Aspartate aminotransferase increased [Unknown]
  - General physical health deterioration [Fatal]

NARRATIVE: CASE EVENT DATE: 201807
